FAERS Safety Report 7118445-8 (Version None)
Quarter: 2010Q4

REPORT INFORMATION
  Report Type: 
  Country: None (occurrence: None)
  Receive Date: 20101027
  Receipt Date: 20100507
  Transmission Date: 20110411
  Serious: Yes (Hospitalization)
  Sender: FDA-Public Use
  Company Number: CTI_01189_2010

PATIENT
  Sex: Female

DRUGS (6)
  1. SPECTRACEF [Suspect]
     Indication: INFECTION
     Dosage: (400 MG BID ORAL)
     Route: 048
     Dates: start: 20100419, end: 20100423
  2. SPECTRACEF [Suspect]
     Indication: PRURITUS
     Dosage: (400 MG BID ORAL)
     Route: 048
     Dates: start: 20100419, end: 20100423
  3. ROCEPHIN [Suspect]
     Indication: DERMATITIS
     Dosage: (DF) ; (DF)
     Dates: start: 20100419, end: 20100419
  4. ROCEPHIN [Suspect]
     Indication: DERMATITIS
     Dosage: (DF) ; (DF)
     Dates: start: 20100422, end: 20100422
  5. CARDIZEM [Concomitant]
  6. COZARTAN [Concomitant]

REACTIONS (2)
  - HYPERSENSITIVITY [None]
  - RASH GENERALISED [None]
